FAERS Safety Report 10960544 (Version 2)
Quarter: 2015Q2

REPORT INFORMATION
  Report Type: Spontaneous
  Country: AU (occurrence: AU)
  Receive Date: 20150327
  Receipt Date: 20150409
  Transmission Date: 20150821
  Serious: Yes (Hospitalization, Other)
  Sender: FDA-Public Use
  Company Number: AU-APOTEX-2015AP007678

PATIENT
  Age: 25 Year
  Sex: Male

DRUGS (10)
  1. APO-SODIUM VALPROATE [Suspect]
     Active Substance: VALPROATE SODIUM
     Indication: DRUG WITHDRAWAL SYNDROME
     Dosage: 500 MG, BID
     Route: 065
  2. DIAZEPAM. [Interacting]
     Active Substance: DIAZEPAM
     Dosage: 50 MG, UNKNOWN
     Route: 065
  3. DIAZEPAM. [Suspect]
     Active Substance: DIAZEPAM
     Indication: DRUG WITHDRAWAL SYNDROME
     Dosage: 15 MG, BID
     Route: 065
  4. DIAZEPAM. [Interacting]
     Active Substance: DIAZEPAM
     Dosage: 60 MG, UNKNOWN
     Route: 065
  5. BUPRENORPHINE [Suspect]
     Active Substance: BUPRENORPHINE
     Indication: DRUG DEPENDENCE
     Dosage: 16 MG, DAILY
     Route: 065
  6. DIAZEPAM. [Interacting]
     Active Substance: DIAZEPAM
     Dosage: 65 MG, UNKNOWN
     Route: 065
  7. CHEMMART ALPRAZOLAM [Interacting]
     Active Substance: ALPRAZOLAM
     Indication: PRODUCT USED FOR UNKNOWN INDICATION
     Dosage: 60 MG, UNKNOWN
     Route: 065
  8. DIAZEPAM. [Interacting]
     Active Substance: DIAZEPAM
     Dosage: 110 MG, DAILY
     Route: 065
  9. DIAZEPAM. [Interacting]
     Active Substance: DIAZEPAM
     Dosage: TAPERING REGIMEN
     Route: 065
  10. LORAZEPAM. [Interacting]
     Active Substance: LORAZEPAM
     Indication: PRODUCT USED FOR UNKNOWN INDICATION
     Dosage: 100 MG, UNK
     Route: 065

REACTIONS (10)
  - Drug interaction [Recovered/Resolved]
  - Intentional product misuse [Recovered/Resolved]
  - Overdose [Recovered/Resolved]
  - Abnormal behaviour [Recovered/Resolved]
  - Toxicity to various agents [Recovered/Resolved]
  - Withdrawal syndrome [Recovered/Resolved]
  - Treatment noncompliance [Recovered/Resolved]
  - Delirium [Recovered/Resolved]
  - Mental disorder [Recovered/Resolved]
  - Drug dependence [Recovered/Resolved]
